FAERS Safety Report 9696004 (Version 2)
Quarter: 2014Q1

REPORT INFORMATION
  Report Type: Spontaneous
  Country: US (occurrence: US)
  Receive Date: 20131119
  Receipt Date: 20140313
  Transmission Date: 20141002
  Serious: Yes (Hospitalization)
  Sender: FDA-Public Use
  Company Number: US-INCYTE CORPORATION-2013IN002692

PATIENT
  Sex: Female

DRUGS (7)
  1. JAKAFI [Suspect]
     Indication: MYELOFIBROSIS
     Dosage: 15 MG, BID
     Route: 065
  2. AMBIEN [Concomitant]
  3. VALIUM [Concomitant]
  4. METRONIDAZOLE [Concomitant]
  5. LUNESTA [Concomitant]
  6. CEFUROXIME [Concomitant]
  7. ESCITALOPRAM [Concomitant]

REACTIONS (2)
  - Road traffic accident [Unknown]
  - Pain in extremity [Unknown]
